FAERS Safety Report 8380656 (Version 2)
Quarter: 2013Q1

REPORT INFORMATION
  Report Type: Report from Study
  Country: PR (occurrence: PR)
  Receive Date: 20120129
  Receipt Date: 20130129
  Transmission Date: 20140127
  Serious: No
  Sender: FDA-Public Use
  Company Number: PR-ABBOTT-11P-131-0887462-00

PATIENT
  Age: 64 Year
  Sex: Female

DRUGS (9)
  1. HUMIRA 40 MG/0.8 ML PEN [Suspect]
     Indication: RHEUMATOID ARTHRITIS
     Route: 058
     Dates: start: 2006, end: 20111223
  2. HUMIRA 40 MG/0.8 ML PEN [Suspect]
     Dates: start: 201202
  3. SYNTHROID [Concomitant]
     Indication: HYPOTHYROIDISM
     Route: 048
     Dates: start: 1975
  4. FOLIC ACID [Concomitant]
     Indication: THALASSAEMIA BETA
     Route: 048
  5. PRILOSEC [Concomitant]
     Indication: GASTRITIS
     Route: 048
  6. PROTONIX [Concomitant]
     Indication: GASTRITIS
     Route: 048
  7. HYDROCHLOROTHIAZIDE [Concomitant]
     Indication: HYPERTENSION
     Route: 048
  8. ATACAND [Concomitant]
     Indication: HYPERTENSION
     Route: 048
  9. METHOTREXATE [Concomitant]
     Indication: RHEUMATOID ARTHRITIS
     Route: 048

REACTIONS (1)
  - Sinusitis [Recovered/Resolved]
